FAERS Safety Report 21520636 (Version 3)
Quarter: 2022Q4

REPORT INFORMATION
  Report Type: Spontaneous
  Country: US (occurrence: US)
  Receive Date: 20221028
  Receipt Date: 20221211
  Transmission Date: 20230113
  Serious: No
  Sender: FDA-Public Use
  Company Number: US-BIOVITRUM-2022US12138

PATIENT
  Sex: Female

DRUGS (3)
  1. DOPTELET [Suspect]
     Active Substance: AVATROMBOPAG MALEATE
     Indication: Immune thrombocytopenia
     Dates: start: 202210
  2. PROMACTA [Concomitant]
     Active Substance: ELTROMBOPAG OLAMINE
  3. DOPTELET [Suspect]
     Active Substance: AVATROMBOPAG MALEATE
     Indication: Thrombocytopenia

REACTIONS (7)
  - Platelet count increased [Unknown]
  - Platelet count decreased [Unknown]
  - Peripheral swelling [Unknown]
  - Polycythaemia [Unknown]
  - Limb discomfort [Unknown]
  - Pain in extremity [Unknown]
  - Product dose omission issue [Unknown]
